FAERS Safety Report 23275185 (Version 2)
Quarter: 2023Q4

REPORT INFORMATION
  Report Type: Spontaneous
  Country: JP (occurrence: None)
  Receive Date: 20231208
  Receipt Date: 20231215
  Transmission Date: 20240110
  Serious: Yes (Hospitalization)
  Sender: FDA-Public Use
  Company Number: 2023A275696

PATIENT
  Age: 67 Year
  Sex: Male
  Weight: 61.9 kg

DRUGS (7)
  1. EVUSHELD [Suspect]
     Active Substance: CILGAVIMAB\TIXAGEVIMAB
     Dosage: DOSE UNKNOWN
     Route: 030
  2. PREDNISOLONE [Suspect]
     Active Substance: PREDNISOLONE
     Dosage: 80.0MG UNKNOWN
  3. PREDNISOLONE [Suspect]
     Active Substance: PREDNISOLONE
     Dosage: 125.0MG UNKNOWN
  4. PREDNISOLONE [Suspect]
     Active Substance: PREDNISOLONE
     Dosage: 60.0MG UNKNOWN
  5. PREDNISOLONE [Suspect]
     Active Substance: PREDNISOLONE
     Dosage: 40.0MG UNKNOWN
  6. RITUXIMAB [Suspect]
     Active Substance: RITUXIMAB
     Indication: Marginal zone lymphoma
     Dosage: DOSE UNKNOWN
     Route: 065
  7. BENDAMUSTINE HYDROCHLORIDE [Suspect]
     Active Substance: BENDAMUSTINE HYDROCHLORIDE
     Indication: Marginal zone lymphoma
     Dosage: DOSE UNKNOWN
     Route: 065

REACTIONS (4)
  - COVID-19 [Recovering/Resolving]
  - Cytomegalovirus test positive [Unknown]
  - White blood cell count decreased [Unknown]
  - Platelet count decreased [Unknown]
